FAERS Safety Report 13671412 (Version 1)
Quarter: 2017Q2

REPORT INFORMATION
  Report Type: Spontaneous
  Country: US (occurrence: US)
  Receive Date: 20170620
  Receipt Date: 20170620
  Transmission Date: 20170830
  Serious: No
  Sender: FDA-Public Use
  Company Number: US-ROCHE-1304646

PATIENT
  Sex: Female

DRUGS (1)
  1. XELODA [Suspect]
     Active Substance: CAPECITABINE
     Indication: BREAST CANCER
     Dosage: TWO TABLETS TWICE DAILY 14 DAYS ON THEN 7 DAYS OFF
     Route: 048
     Dates: start: 20131023

REACTIONS (1)
  - Suicidal ideation [Unknown]
